FAERS Safety Report 16198209 (Version 2)
Quarter: 2020Q2

REPORT INFORMATION
  Report Type: Spontaneous
  Country: DK (occurrence: DK)
  Receive Date: 20190415
  Receipt Date: 20200501
  Transmission Date: 20200713
  Serious: Yes (Life-Threatening, Hospitalization)
  Sender: FDA-Public Use
  Company Number: DK-B.I. PHARMACEUTICALS,INC./RIDGEFIELD-2019-12-001271

PATIENT
  Age: 55 Year
  Sex: Male
  Weight: 85 kg

DRUGS (2)
  1. SYNJARDY [Suspect]
     Active Substance: EMPAGLIFLOZIN\METFORMIN HYDROCHLORIDE
     Indication: TYPE 2 DIABETES MELLITUS
     Dosage: STYRKE: 12,5MG/1000MG
     Route: 048
     Dates: start: 20170407, end: 20190325
  2. TOUJEO [Concomitant]
     Active Substance: INSULIN GLARGINE
     Indication: DIABETES MELLITUS
     Dosage: STYRKE: 300ENHEDER/ML, FORM OF ADMINISTRATION - SOLUTION FOR INJECTION IN PRE-FILLED PEN
     Route: 065
     Dates: start: 20150623

REACTIONS (5)
  - Amnesia [Unknown]
  - Altered state of consciousness [Unknown]
  - Diabetic ketoacidosis [Recovered/Resolved]
  - Brain injury [Unknown]
  - Confusional state [Unknown]

NARRATIVE: CASE EVENT DATE: 2019
